FAERS Safety Report 15029749 (Version 1)
Quarter: 2018Q2

REPORT INFORMATION
  Report Type: Spontaneous
  Country: US (occurrence: US)
  Receive Date: 20180619
  Receipt Date: 20180619
  Transmission Date: 20180711
  Serious: No
  Sender: FDA-Public Use
  Company Number: US-ASTRAZENECA-2018SE73875

PATIENT
  Sex: Female
  Weight: 86.2 kg

DRUGS (6)
  1. SYMBICORT [Suspect]
     Active Substance: BUDESONIDE\FORMOTEROL FUMARATE DIHYDRATE
     Indication: BRONCHITIS CHRONIC
     Dosage: 160/ 4.5 MCG INHALER 2 INHALATIONS TWICE DAY
     Route: 055
     Dates: start: 2011
  2. TUDORZA PRESSAIR [Suspect]
     Active Substance: ACLIDINIUM BROMIDE
     Indication: BRONCHITIS CHRONIC
     Route: 055
     Dates: start: 2011
  3. SYMBICORT [Suspect]
     Active Substance: BUDESONIDE\FORMOTEROL FUMARATE DIHYDRATE
     Indication: CHRONIC OBSTRUCTIVE PULMONARY DISEASE
     Dosage: 160/ 4.5 MCG INHALER 2 INHALATIONS TWICE DAY
     Route: 055
     Dates: start: 2011
  4. OXYGEN. [Concomitant]
     Active Substance: OXYGEN
     Indication: DYSPNOEA
     Route: 045
  5. VENTOLIN [Concomitant]
     Active Substance: ALBUTEROL SULFATE
     Indication: PROPHYLAXIS
     Dosage: AS REQUIRED
     Route: 055
  6. TUDORZA PRESSAIR [Suspect]
     Active Substance: ACLIDINIUM BROMIDE
     Indication: CHRONIC OBSTRUCTIVE PULMONARY DISEASE
     Route: 055
     Dates: start: 2011

REACTIONS (7)
  - Loss of personal independence in daily activities [Unknown]
  - Gait disturbance [Unknown]
  - Hyperventilation [Unknown]
  - Pulmonary function test abnormal [Unknown]
  - Device defective [Unknown]
  - Dyspnoea [Unknown]
  - Drug ineffective [Unknown]
